FAERS Safety Report 10099976 (Version 1)
Quarter: 2014Q2

REPORT INFORMATION
  Report Type: Report from Study
  Country: CA (occurrence: CA)
  Receive Date: 20140423
  Receipt Date: 20140423
  Transmission Date: 20141212
  Serious: Yes (Other)
  Sender: FDA-Public Use
  Company Number: CA-ABBVIE-14P-028-1226773-00

PATIENT
  Sex: Male
  Weight: 102.15 kg

DRUGS (2)
  1. HUMIRA [Suspect]
     Indication: PSORIASIS
     Route: 058
     Dates: start: 20110321, end: 201402
  2. HUMIRA [Suspect]
     Route: 058
     Dates: start: 20140411

REACTIONS (3)
  - Meniscus injury [Recovering/Resolving]
  - Pain [Unknown]
  - Ligament sprain [Unknown]
